FAERS Safety Report 22890176 (Version 2)
Quarter: 2024Q2

REPORT INFORMATION
  Report Type: Spontaneous
  Country: US (occurrence: US)
  Receive Date: 20230831
  Receipt Date: 20240503
  Transmission Date: 20240715
  Serious: Yes (Other)
  Sender: FDA-Public Use
  Company Number: US-PFIZER INC-PV202300146761

PATIENT
  Age: 70 Year
  Sex: Male

DRUGS (1)
  1. VYNDAMAX [Suspect]
     Active Substance: TAFAMIDIS
     Indication: Acquired ATTR amyloidosis
     Dosage: 61 MG

REACTIONS (3)
  - Dialysis [Unknown]
  - Loss of personal independence in daily activities [Unknown]
  - Fall [Unknown]

NARRATIVE: CASE EVENT DATE: 20240401
